FAERS Safety Report 6136529-8 (Version None)
Quarter: 2009Q1

REPORT INFORMATION
  Report Type: 
  Country: None (occurrence: None)
  Receive Date: 20090330
  Receipt Date: 20090317
  Transmission Date: 20090719
  Serious: Yes (Other)
  Sender: FDA-Public Use
  Company Number: US-PFIZER INC-2008157451

PATIENT
  Sex: Female

DRUGS (2)
  1. GEODON [Suspect]
  2. METHADONE HYDROCHLORIDE [Suspect]

REACTIONS (2)
  - CARDIAC ARREST [None]
  - DRUG INTERACTION [None]
